FAERS Safety Report 9680067 (Version 1)
Quarter: 2013Q4

REPORT INFORMATION
  Report Type: Spontaneous
  Country: US (occurrence: US)
  Receive Date: 20131110
  Receipt Date: 20131110
  Transmission Date: 20140711
  Serious: No
  Sender: FDA-Public Use
  Company Number: US-009507513-1310USA013929

PATIENT
  Sex: Male

DRUGS (1)
  1. PROPECIA [Suspect]
     Dosage: UNK
     Route: 048
     Dates: start: 201303

REACTIONS (2)
  - Alopecia [Unknown]
  - Gynaecomastia [Unknown]
